FAERS Safety Report 16151427 (Version 2)
Quarter: 2019Q2

REPORT INFORMATION
  Report Type: Report from Study
  Country: FR (occurrence: FR)
  Receive Date: 20190403
  Receipt Date: 20190524
  Transmission Date: 20190711
  Serious: Yes (Death, Hospitalization, Other)
  Sender: FDA-Public Use
  Company Number: FR-BRISTOL-MYERS SQUIBB COMPANY-BMS-2019-032082

PATIENT
  Age: 50 Year
  Sex: Female
  Weight: 52 kg

DRUGS (6)
  1. NIVOLUMAB [Suspect]
     Active Substance: NIVOLUMAB
     Indication: METASTATIC MALIGNANT MELANOMA
     Dosage: 156 MILLIGRAM, Q3WK
     Route: 042
     Dates: start: 20181219, end: 20190108
  2. IPILIMUMAB [Suspect]
     Active Substance: IPILIMUMAB
     Indication: METASTATIC MALIGNANT MELANOMA
     Dosage: 52 MILLIGRAM, Q3WK
     Route: 042
     Dates: start: 20181219, end: 20190108
  3. FENTANYL. [Concomitant]
     Active Substance: FENTANYL
     Indication: PRODUCT USED FOR UNKNOWN INDICATION
     Dosage: 25 MILLIGRAM
     Route: 048
     Dates: start: 20190107
  4. FENTANYL. [Concomitant]
     Active Substance: FENTANYL
     Indication: PAIN
     Dosage: 1 DOSAGE FORM, TID
     Route: 048
     Dates: start: 20181219, end: 20190107
  5. ACTISKENAN [Concomitant]
     Active Substance: MORPHINE SULFATE
     Indication: PAIN
     Dosage: 10 MILLIGRAM, Q4H
     Route: 048
     Dates: start: 20190107
  6. VOGALENE [Concomitant]
     Active Substance: METOPIMAZINE
     Indication: NAUSEA
     Dosage: 5 MILLIGRAM, PRN
     Route: 048
     Dates: start: 20181219

REACTIONS (4)
  - Malignant neoplasm progression [Fatal]
  - Confusional state [Fatal]
  - Meningitis [Fatal]
  - Behaviour disorder [Unknown]

NARRATIVE: CASE EVENT DATE: 20190114
